FAERS Safety Report 20085478 (Version 2)
Quarter: 2021Q4

REPORT INFORMATION
  Report Type: Spontaneous
  Country: NO (occurrence: NO)
  Receive Date: 20211118
  Receipt Date: 20211130
  Transmission Date: 20220303
  Serious: Yes (Hospitalization)
  Sender: FDA-Public Use
  Company Number: NO-NOVARTISPH-NVSC2021NO255561

PATIENT
  Age: 67 Year
  Sex: Female

DRUGS (11)
  1. ZYKADIA [Suspect]
     Active Substance: CERITINIB
     Indication: Lung adenocarcinoma
     Dosage: UNK (DOSE REDUCED BY 150 MG)
     Route: 065
     Dates: start: 2018, end: 2018
  2. ZYKADIA [Suspect]
     Active Substance: CERITINIB
     Dosage: DOSE REDUCED BY ADDITIONAL 150 MG AFTER PAUSE
     Route: 065
     Dates: start: 2018, end: 201811
  3. ZYKADIA [Suspect]
     Active Substance: CERITINIB
     Dosage: UNK
     Route: 065
     Dates: start: 2018, end: 2018
  4. XALKORI [Suspect]
     Active Substance: CRIZOTINIB
     Indication: Product used for unknown indication
     Dosage: 500 MG, QD (250 MG, 2X/DAY)
     Route: 065
     Dates: start: 201704, end: 2017
  5. XALKORI [Suspect]
     Active Substance: CRIZOTINIB
     Dosage: 500 MG, QD (250 MG, 2X/DAY)
     Route: 065
     Dates: start: 201709, end: 2018
  6. XALKORI [Suspect]
     Active Substance: CRIZOTINIB
     Dosage: 400 MG, QD (200 MG, 2X/DAY)
     Route: 065
     Dates: start: 201707, end: 201709
  7. XALKORI [Suspect]
     Active Substance: CRIZOTINIB
     Dosage: 400 MG, QD (200 MG, 2X/DAY)
     Route: 065
     Dates: start: 2018, end: 201807
  8. BRIGATINIB [Suspect]
     Active Substance: BRIGATINIB
     Indication: Product used for unknown indication
     Dosage: 180MG (250 MG, 2X/DAY)
     Route: 065
     Dates: start: 201704, end: 2017
  9. BRIGATINIB [Suspect]
     Active Substance: BRIGATINIB
     Dosage: 90 MG, SINGLE (90MGX1 FOR 1 WEEK)
     Route: 065
     Dates: start: 20190213
  10. BRIGATINIB [Suspect]
     Active Substance: BRIGATINIB
     Dosage: 180 MG, SINGLE X 1
     Route: 065
  11. MEDROL [Concomitant]
     Active Substance: METHYLPREDNISOLONE
     Indication: Product used for unknown indication
     Dosage: 90MG (90 MG X 1 FOR 1 WEEK)
     Route: 065
     Dates: start: 20190213

REACTIONS (10)
  - Malaise [Recovered/Resolved]
  - Unresponsive to stimuli [Recovered/Resolved]
  - Nausea [Recovered/Resolved]
  - Transaminases increased [Unknown]
  - Neoplasm progression [Not Recovered/Not Resolved]
  - Neutrophil count decreased [Recovered/Resolved]
  - Diarrhoea [Unknown]
  - Nausea [Unknown]
  - Dizziness [Not Recovered/Not Resolved]
  - Balance disorder [Not Recovered/Not Resolved]

NARRATIVE: CASE EVENT DATE: 20170101
